FAERS Safety Report 6996387-6 (Version None)
Quarter: 2010Q3

REPORT INFORMATION
  Report Type: 
  Country: None (occurrence: None)
  Receive Date: 20100918
  Receipt Date: 20090217
  Transmission Date: 20110219
  Serious: No
  Sender: FDA-Public Use
  Company Number: US-WYE-H08252509

PATIENT
  Sex: Female
  Weight: 109.87 kg

DRUGS (5)
  1. EFFEXOR XR [Suspect]
     Indication: ANXIETY
     Route: 048
     Dates: start: 20000301
  2. ALBUTEROL [Concomitant]
  3. SPIRONOLACTONE [Concomitant]
  4. SYNTHROID [Concomitant]
  5. METFORMIN [Concomitant]

REACTIONS (4)
  - DRUG EFFECT DECREASED [None]
  - DRUG TOLERANCE [None]
  - DRUG WITHDRAWAL SYNDROME [None]
  - PARAESTHESIA [None]
